FAERS Safety Report 21688276 (Version 1)
Quarter: 2022Q4

REPORT INFORMATION
  Report Type: Spontaneous
  Country: US (occurrence: None)
  Receive Date: 20221205
  Receipt Date: 20221205
  Transmission Date: 20230112
  Serious: Yes (Hospitalization, Disabling)
  Sender: FDA-Public Use
  Company Number: None

PATIENT
  Age: 44 Year
  Sex: Female
  Weight: 55.35 kg

DRUGS (8)
  1. CIPROFLOXACIN [Suspect]
     Active Substance: CIPROFLOXACIN
     Indication: Diverticulitis
     Dosage: OTHER QUANTITY : 1 CAPSULE(S);?FREQUENCY : TWICE A DAY;?
     Route: 048
     Dates: start: 20201028, end: 20201031
  2. OMEPRAZOLE [Concomitant]
     Active Substance: OMEPRAZOLE
  3. LIDOCAINE [Concomitant]
  4. TYLENOL [Concomitant]
     Active Substance: ACETAMINOPHEN
  5. ADVIL [Concomitant]
     Active Substance: IBUPROFEN
  6. COLLAGEN [Concomitant]
     Active Substance: COLLAGEN
  7. MAGNESIUM [Concomitant]
     Active Substance: MAGNESIUM
  8. BIOFREEZE [Concomitant]
     Active Substance: MENTHOL

REACTIONS (13)
  - Muscle tightness [None]
  - Muscle strain [None]
  - Tendon disorder [None]
  - Eagle^s syndrome [None]
  - Muscle tension dysphonia [None]
  - Sensation of blood flow [None]
  - Tendonitis [None]
  - Tendonitis [None]
  - Diarrhoea [None]
  - Constipation [None]
  - Insomnia [None]
  - Depression [None]
  - Fatigue [None]

NARRATIVE: CASE EVENT DATE: 20201031
